FAERS Safety Report 8561554-7 (Version None)
Quarter: 2012Q3

REPORT INFORMATION
  Report Type: 
  Country: None (occurrence: None)
  Receive Date: 20120802
  Receipt Date: 20120801
  Transmission Date: 20120928
  Serious: Yes (Disabling)
  Sender: FDA-Public Use
  Company Number: PHHY2012GB063282

PATIENT
  Age: 59 Year
  Sex: Male

DRUGS (3)
  1. CITALOPRAM HYDROBROMIDE [Suspect]
  2. LORAZEPAM [Suspect]
  3. OMEPRAZOLE [Suspect]
     Route: 048

REACTIONS (1)
  - HOMICIDE [None]
